FAERS Safety Report 8450568 (Version 3)
Quarter: 2012Q4

REPORT INFORMATION
  Report Type: 
  Country: RU (occurrence: RU)
  Receive Date: 20120309
  Receipt Date: 20120924
  Transmission Date: 20130627
  Serious: Yes (Hospitalization)
  Sender: FDA-Public Use
  Company Number: RU-PFIZER INC-2012025630

PATIENT
  Age: 66 Year
  Sex: Female
  Weight: 84.8 kg

DRUGS (6)
  1. AXITINIB [Suspect]
     Indication: METASTATIC RENAL CELL CARCINOMA
     Dosage: 5 mg, 2x/day
     Route: 048
     Dates: start: 20100429, end: 20100526
  2. AXITINIB [Suspect]
     Dosage: 7 mg, 2x/day
     Route: 048
     Dates: start: 20100527, end: 20100609
  3. AXITINIB [Suspect]
     Dosage: 10 mg, 2x/day (since 09Jun2010 pm dose till 23Feb2011 pm dose)
     Route: 048
     Dates: start: 20100609, end: 20110223
  4. AXITINIB [Suspect]
     Dosage: 7 mg, 2x/day
     Route: 048
     Dates: start: 20110224, end: 20120126
  5. ENALAPRIL [Concomitant]
     Indication: HYPERTENSION
     Dosage: 5 mg, 1x/day
     Route: 048
     Dates: start: 20100501
  6. L-THYROXIN [Concomitant]
     Indication: HYPOTHYROIDISM
     Dosage: 100 ug, 1x/day
     Route: 048
     Dates: start: 20100921

REACTIONS (1)
  - Cerebrovascular insufficiency [Recovered/Resolved]
